FAERS Safety Report 8786368 (Version 1)
Quarter: 2012Q4

REPORT INFORMATION
  Report Type: 
  Country: CN (occurrence: CN)
  Receive Date: 20120914
  Receipt Date: 20120914
  Transmission Date: 20130627
  Serious: Yes (Other)
  Sender: FDA-Public Use
  Company Number: CN-PFIZER INC-2012224511

PATIENT
  Sex: Female
  Weight: 50 kg

DRUGS (7)
  1. TAZOCIN [Suspect]
     Indication: SEPSIS
     Dosage: 4.5 g, 3x/day
     Dates: start: 20110317, end: 20110325
  2. TAZOCIN [Suspect]
     Indication: INFECTION
  3. CEFTIZOXIME [Concomitant]
     Dosage: 1 g, 2x/day
     Route: 041
  4. ETIMICIN SULFATE [Concomitant]
     Dosage: 0.1 g, 2x/day
  5. CALCIUM GLUCONATE [Concomitant]
     Dosage: 10 ml, 1x/day
     Route: 041
  6. POTASSIUM CHLORIDE [Concomitant]
     Dosage: 10 ml, 1x/day
  7. VITAMIN C [Concomitant]
     Dosage: 1 g, 1x/day
     Route: 041

REACTIONS (1)
  - Fungal infection [Recovered/Resolved]
